FAERS Safety Report 16950785 (Version 1)
Quarter: 2019Q4

REPORT INFORMATION
  Report Type: Spontaneous
  Country: US (occurrence: US)
  Receive Date: 20191023
  Receipt Date: 20191023
  Transmission Date: 20200122
  Serious: No
  Sender: FDA-Public Use
  Company Number: US-ALIMERA SCIENCES INC.-US-IL-2018-004169

PATIENT
  Sex: Male

DRUGS (2)
  1. ILUVIEN [Suspect]
     Active Substance: FLUOCINOLONE ACETONIDE
     Dosage: 0.25 ?G, QD - UNKNOWN EYE
     Route: 031
     Dates: start: 201801
  2. ILUVIEN [Suspect]
     Active Substance: FLUOCINOLONE ACETONIDE
     Indication: DIABETIC RETINAL OEDEMA
     Dosage: 0.25 ?G, QD - UNKNOWN EYE
     Route: 031

REACTIONS (2)
  - Device dislocation [Unknown]
  - Corneal oedema [Unknown]

NARRATIVE: CASE EVENT DATE: 201804
